FAERS Safety Report 18991608 (Version 1)
Quarter: 2021Q1

REPORT INFORMATION
  Report Type: Spontaneous
  Country: US (occurrence: US)
  Receive Date: 20210310
  Receipt Date: 20210310
  Transmission Date: 20210420
  Serious: No
  Sender: FDA-Public Use
  Company Number: US-TEVA-2021-US-1879942

PATIENT
  Sex: Male

DRUGS (8)
  1. AUSTEDO [Suspect]
     Active Substance: DEUTETRABENAZINE
     Indication: HUNTINGTON^S DISEASE
     Dosage: 6 MILLIGRAM DAILY;
     Route: 048
     Dates: start: 20201026
  2. AUSTEDO [Suspect]
     Active Substance: DEUTETRABENAZINE
     Dosage: 1/2 TABLET TWICE DAILY
  3. MIRTAZAPINE. [Concomitant]
     Active Substance: MIRTAZAPINE
  4. ABILIFY [Concomitant]
     Active Substance: ARIPIPRAZOLE
  5. TYLENOL WITH CODEINE [Concomitant]
     Active Substance: ACETAMINOPHEN\CODEINE PHOSPHATE
  6. EFFEXOR [Concomitant]
     Active Substance: VENLAFAXINE HYDROCHLORIDE
  7. XANAX [Concomitant]
     Active Substance: ALPRAZOLAM
     Dosage: 4 MILLIGRAM DAILY;
  8. BACLOFEN. [Concomitant]
     Active Substance: BACLOFEN

REACTIONS (8)
  - Therapy interrupted [Unknown]
  - Wrong technique in product usage process [Unknown]
  - Tic [Not Recovered/Not Resolved]
  - Chorea [Not Recovered/Not Resolved]
  - Vertigo [Not Recovered/Not Resolved]
  - Product use issue [Unknown]
  - Product prescribing error [Unknown]
  - Malaise [Not Recovered/Not Resolved]
